FAERS Safety Report 15788104 (Version 5)
Quarter: 2019Q2

REPORT INFORMATION
  Report Type: Spontaneous
  Country: CZ (occurrence: CZ)
  Receive Date: 20190104
  Receipt Date: 20190409
  Transmission Date: 20190711
  Serious: Yes (Life-Threatening, Hospitalization, Other)
  Sender: FDA-Public Use
  Company Number: CZ-BRISTOL-MYERS SQUIBB COMPANY-BMS-2018-120101

PATIENT
  Age: 63 Year
  Sex: Male

DRUGS (1)
  1. OPDIVO [Suspect]
     Active Substance: NIVOLUMAB
     Indication: RENAL CANCER
     Dosage: UNAVAILABLE
     Route: 065

REACTIONS (14)
  - Muscular weakness [Unknown]
  - Facial paresis [Unknown]
  - Guillain-Barre syndrome [Unknown]
  - Bulbar palsy [Unknown]
  - Bronchitis [Unknown]
  - Bradycardia [Unknown]
  - Areflexia [Unknown]
  - Reduced facial expression [Unknown]
  - Hypotension [Unknown]
  - Epstein-Barr virus antibody positive [Unknown]
  - Neurotoxicity [Unknown]
  - Dyspnoea [Unknown]
  - Dysarthria [Unknown]
  - Paraesthesia [Unknown]

NARRATIVE: CASE EVENT DATE: 20181205
